FAERS Safety Report 4480937-8 (Version None)
Quarter: 2004Q4

REPORT INFORMATION
  Report Type: 
  Country: None (occurrence: None)
  Receive Date: 20041020
  Receipt Date: 20041020
  Transmission Date: 20050328
  Serious: Yes (Death, Hospitalization)
  Sender: FDA-Public Use
  Company Number: None

PATIENT
  Age: 58 Year
  Sex: Male
  Weight: 86.637 kg

DRUGS (9)
  1. CAPECITABINE 2000MG/M2 PO AS DIVIDED DOSES DAILY [Suspect]
     Indication: PANCREATIC CARCINOMA
     Dosage: 2000 MG/M2 PO QD
     Route: 048
     Dates: start: 20040915, end: 20040929
  2. OXALIPLATIN 130 MG/M3 ONCE EVERY 3 WEEKS [Suspect]
     Indication: PANCREATIC CARCINOMA
     Dosage: 130 MG/M3 IV Q3WKS
     Route: 042
     Dates: start: 20040915
  3. ATIVAN [Concomitant]
  4. FENTANYL [Concomitant]
  5. LACTULOSE [Concomitant]
  6. MS CONTIN [Concomitant]
  7. NYSTATIN [Concomitant]
  8. PREVACID [Concomitant]
  9. RITALIN [Concomitant]

REACTIONS (9)
  - ASCITES [None]
  - ASTERIXIS [None]
  - CARBOHYDRATE ANTIGEN 19-9 INCREASED [None]
  - DISEASE PROGRESSION [None]
  - EFFUSION [None]
  - ENCEPHALOPATHY [None]
  - HEPATIC FAILURE [None]
  - LUNG NEOPLASM [None]
  - METASTASES TO LIVER [None]
